FAERS Safety Report 23852774 (Version 1)
Quarter: 2024Q2

REPORT INFORMATION
  Report Type: Spontaneous
  Country: VN (occurrence: None)
  Receive Date: 20240514
  Receipt Date: 20240514
  Transmission Date: 20240716
  Serious: Yes (Life-Threatening, Hospitalization)
  Sender: FDA-Public Use
  Company Number: VN-ROCHE-3560364

PATIENT
  Sex: Male

DRUGS (1)
  1. TECENTRIQ [Suspect]
     Active Substance: ATEZOLIZUMAB
     Indication: Product used for unknown indication
     Dosage: (1200 MG/20 ML)
     Route: 041

REACTIONS (3)
  - Cerebrovascular accident [Not Recovered/Not Resolved]
  - Paralysis [Not Recovered/Not Resolved]
  - Aphasia [Not Recovered/Not Resolved]

NARRATIVE: CASE EVENT DATE: 20230920
